FAERS Safety Report 17036282 (Version 1)
Quarter: 2019Q4

REPORT INFORMATION
  Report Type: Report from Study
  Country: CN (occurrence: CN)
  Receive Date: 20191115
  Receipt Date: 20191115
  Transmission Date: 20200122
  Serious: Yes (Death)
  Sender: FDA-Public Use
  Company Number: CN-ACTELION-A-CH2019-198227

PATIENT
  Age: 30 Year
  Sex: Male
  Weight: 68 kg

DRUGS (18)
  1. SELEXIPAG [Suspect]
     Active Substance: SELEXIPAG
     Dosage: 200 MCG, BID
     Route: 048
     Dates: start: 20140707, end: 20140715
  2. SELEXIPAG [Suspect]
     Active Substance: SELEXIPAG
     Dosage: 200 MCG, BID
     Route: 048
     Dates: start: 20140821, end: 20141028
  3. SODIUM FERULATE [Concomitant]
     Indication: PULMONARY ARTERIAL HYPERTENSION
     Dosage: 300 MG, QD
     Route: 048
     Dates: start: 20121126, end: 20190913
  4. SELEXIPAG [Suspect]
     Active Substance: SELEXIPAG
     Dosage: 600 MCG, BID
     Route: 048
     Dates: start: 20140722, end: 20140728
  5. SELEXIPAG [Suspect]
     Active Substance: SELEXIPAG
     Dosage: 1400 MCG, BID
     Route: 048
     Dates: start: 20140821
  6. SELEXIPAG [Suspect]
     Active Substance: SELEXIPAG
     Dosage: 1200 MCG, BID
     Route: 048
     Dates: start: 20140813, end: 20140821
  7. GLUCURONIC ACID [Concomitant]
     Dosage: UNK
     Dates: start: 20121210, end: 20190913
  8. PHOSPHATIDYL CHOLINE [Concomitant]
     Active Substance: LECITHIN
     Dosage: UNK
     Dates: start: 20121208, end: 20190913
  9. POTASSIUM [Concomitant]
     Active Substance: POTASSIUM
     Indication: MINERAL SUPPLEMENTATION
     Dosage: UNK UNK, QD
     Route: 048
     Dates: start: 20121126, end: 20190913
  10. TORASEMIDE [Concomitant]
     Active Substance: TORSEMIDE
     Indication: DIURETIC THERAPY
     Dosage: 10 MG, QD
     Route: 048
     Dates: start: 20121130, end: 20190913
  11. SELEXIPAG [Suspect]
     Active Substance: SELEXIPAG
     Indication: PULMONARY ARTERIAL HYPERTENSION
     Dosage: 1600 MCG, BID
     Route: 048
     Dates: start: 20141028, end: 20190913
  12. DIGOXIN. [Concomitant]
     Active Substance: DIGOXIN
     Indication: DRUG THERAPY ENHANCEMENT
     Dosage: UNK
     Dates: start: 20121126, end: 20190913
  13. FUROSEMIDE. [Concomitant]
     Active Substance: FUROSEMIDE
     Indication: DIURETIC THERAPY
     Dosage: 30 MG, QD
     Route: 048
     Dates: start: 201109, end: 20190913
  14. WARFARIN [Concomitant]
     Active Substance: WARFARIN
     Indication: THROMBOSIS PROPHYLAXIS
     Dosage: 3 MG, QD
     Route: 048
     Dates: start: 20121208, end: 20190913
  15. SELEXIPAG [Suspect]
     Active Substance: SELEXIPAG
     Dosage: 1000 MCG, BID
     Route: 048
     Dates: start: 20140806, end: 20140813
  16. SPIRONOLACTONE. [Concomitant]
     Active Substance: SPIRONOLACTONE
     Indication: DIURETIC THERAPY
     Dosage: 20 MG, QD
     Route: 048
     Dates: start: 201109, end: 20190913
  17. SELEXIPAG [Suspect]
     Active Substance: SELEXIPAG
     Dosage: 400 MCG, BID
     Route: 048
     Dates: start: 20140715, end: 20140722
  18. SELEXIPAG [Suspect]
     Active Substance: SELEXIPAG
     Dosage: 800 MCG, BID
     Route: 048
     Dates: start: 20140728, end: 20140806

REACTIONS (1)
  - Death [Fatal]

NARRATIVE: CASE EVENT DATE: 20190913
